FAERS Safety Report 5419386-4 (Version None)
Quarter: 2007Q3

REPORT INFORMATION
  Report Type: 
  Country: None (occurrence: None)
  Receive Date: 20070816
  Receipt Date: 20070816
  Transmission Date: 20080115
  Serious: Yes (Hospitalization)
  Sender: FDA-Public Use
  Company Number: None

PATIENT
  Age: 77 Year
  Sex: Male
  Weight: 89.5 kg

DRUGS (1)
  1. DEPAKOTE [Suspect]
     Indication: CONVULSION PROPHYLAXIS
     Dosage: PO
     Route: 048

REACTIONS (2)
  - HEPATIC ENCEPHALOPATHY [None]
  - HEPATIC FAILURE [None]
